FAERS Safety Report 5262270-X (Version None)
Quarter: 2007Q1

REPORT INFORMATION
  Report Type: 
  Country: None (occurrence: None)
  Receive Date: 20070308
  Receipt Date: 20070305
  Transmission Date: 20070707
  Serious: Yes (Hospitalization)
  Sender: FDA-Public Use
  Company Number: 2007-01061

PATIENT
  Age: 74 Year
  Sex: Male

DRUGS (7)
  1. TRELSTAR [Suspect]
     Indication: PROSTATE CANCER
     Dosage: 11.25 MG, 1 IN 3 MONTHS, INTRAMUSCULAR
     Route: 030
     Dates: start: 20060701, end: 20070111
  2. LIPANTHYL ^BRISTOL-MYERS SQUIBB^ (FENOFIBRATE) [Concomitant]
  3. LIORESAL [Concomitant]
  4. CLONAZEPAM [Concomitant]
  5. CHRONADALATE [Concomitant]
  6. LYRICA [Concomitant]
  7. KARDEGIC (ACETYLSALICYLATE LYSINE) [Concomitant]

REACTIONS (6)
  - ALANINE AMINOTRANSFERASE INCREASED [None]
  - ASPARTATE AMINOTRANSFERASE INCREASED [None]
  - BLOOD ALKALINE PHOSPHATASE INCREASED [None]
  - BLOOD BILIRUBIN INCREASED [None]
  - JAUNDICE [None]
  - TRANSAMINASES INCREASED [None]
